APPROVED DRUG PRODUCT: CIPROFLOXACIN EXTENDED RELEASE
Active Ingredient: CIPROFLOXACIN; CIPROFLOXACIN HYDROCHLORIDE
Strength: 425.2MG;EQ 574.9MG BASE
Dosage Form/Route: TABLET, EXTENDED RELEASE;ORAL
Application: A077809 | Product #001
Applicant: ANI PHARMACEUTICALS INC
Approved: Nov 30, 2010 | RLD: No | RS: No | Type: DISCN